FAERS Safety Report 21593280 (Version 1)
Quarter: 2022Q4

REPORT INFORMATION
  Report Type: Spontaneous
  Country: US (occurrence: None)
  Receive Date: 20221114
  Receipt Date: 20221114
  Transmission Date: 20230112
  Serious: Yes (Hospitalization)
  Sender: FDA-Public Use
  Company Number: None

PATIENT
  Age: 57 Year
  Sex: Male

DRUGS (1)
  1. DEFERASIROX [Suspect]
     Active Substance: DEFERASIROX
     Indication: Myelofibrosis
     Dosage: 2000MG DAILY ORAL?
     Route: 048
     Dates: start: 202011

REACTIONS (1)
  - Transfusion [None]

NARRATIVE: CASE EVENT DATE: 20221018
